FAERS Safety Report 7080590-3 (Version None)
Quarter: 2010Q4

REPORT INFORMATION
  Report Type: 
  Country: None (occurrence: None)
  Receive Date: 20101025
  Receipt Date: 20101014
  Transmission Date: 20110411
  Serious: Yes (Other)
  Sender: FDA-Public Use
  Company Number: 1000016861

PATIENT
  Age: 55 Year
  Sex: Female

DRUGS (2)
  1. SAVELLA [Suspect]
     Dosage: 50 MG (25 MG, 2 IN 1 D), ORAL
     Route: 048
  2. TRAMADOL HCL [Concomitant]

REACTIONS (3)
  - ANGER [None]
  - HOMICIDAL IDEATION [None]
  - IRRITABILITY [None]
